FAERS Safety Report 17817151 (Version 2)
Quarter: 2020Q2

REPORT INFORMATION
  Report Type: Spontaneous
  Country: US (occurrence: US)
  Receive Date: 20200522
  Receipt Date: 20200617
  Transmission Date: 20200714
  Serious: Yes (Life-Threatening, Hospitalization, Other)
  Sender: FDA-Public Use
  Company Number: US-BAYER-2020-084891

PATIENT
  Age: 29 Year
  Sex: Female

DRUGS (13)
  1. VITAMIN B6 [Suspect]
     Active Substance: PYRIDOXINE HYDROCHLORIDE
     Indication: PROPHYLAXIS
     Dosage: 50 MG, QD
     Route: 048
     Dates: start: 20200221, end: 20200326
  2. MEFENAMIC ACID. [Suspect]
     Active Substance: MEFENAMIC ACID
     Indication: PELVIC PAIN
     Dosage: 500 MG, TID
     Dates: start: 20200303, end: 20200310
  3. DELAMANID [Suspect]
     Active Substance: DELAMANID
     Indication: TUBERCULOSIS
     Dosage: 100 MG, BID
     Route: 048
     Dates: start: 20200221, end: 20200326
  4. CLOFAZIMINE [Suspect]
     Active Substance: CLOFAZIMINE
     Indication: TUBERCULOSIS
     Dosage: 100 MG, QD
     Route: 048
     Dates: start: 20200420
  5. PYRAZINAMIDE. [Suspect]
     Active Substance: PYRAZINAMIDE
     Indication: TUBERCULOSIS
     Dosage: 800 MG, QD
     Route: 048
     Dates: start: 20200221, end: 20200326
  6. TOBRAMYCIN AND DEXAMETHASONE [Suspect]
     Active Substance: DEXAMETHASONE\TOBRAMYCIN
     Indication: OTITIS MEDIA
     Dosage: 2 GTT, TID
     Dates: start: 20200303, end: 20200311
  7. DELAMANID [Suspect]
     Active Substance: DELAMANID
     Indication: TUBERCULOSIS
     Dosage: UNK
     Dates: start: 20200414
  8. AVELOX [Suspect]
     Active Substance: MOXIFLOXACIN HYDROCHLORIDE
     Indication: TUBERCULOSIS
     Dosage: UNK
     Route: 048
     Dates: start: 20200414
  9. AVELOX [Suspect]
     Active Substance: MOXIFLOXACIN HYDROCHLORIDE
     Indication: TUBERCULOSIS
     Dosage: UNK
     Route: 048
     Dates: start: 20200505
  10. IMIPENEM [Suspect]
     Active Substance: IMIPENEM
     Dosage: 500 MG, TID
     Route: 042
     Dates: start: 20200405, end: 20200413
  11. AVELOX [Suspect]
     Active Substance: MOXIFLOXACIN HYDROCHLORIDE
     Indication: TUBERCULOSIS
     Dosage: 400 MG, QD
     Route: 048
     Dates: start: 20200221, end: 20200326
  12. DELAMANID [Suspect]
     Active Substance: DELAMANID
     Indication: TUBERCULOSIS
     Dosage: 100 MG, BID
     Route: 048
     Dates: start: 20200420
  13. CLOFAZIMINE [Suspect]
     Active Substance: CLOFAZIMINE
     Indication: TUBERCULOSIS
     Dosage: 100 MG, QD
     Route: 048
     Dates: start: 20200221, end: 20200326

REACTIONS (10)
  - Product use in unapproved indication [None]
  - Drug reaction with eosinophilia and systemic symptoms [Recovering/Resolving]
  - Otitis media [Recovered/Resolved]
  - Lethargy [Not Recovered/Not Resolved]
  - Eye swelling [None]
  - Otorrhoea [Recovered/Resolved]
  - Off label use [None]
  - Fatigue [Not Recovered/Not Resolved]
  - Seizure [Recovered/Resolved]
  - Tinea infection [None]

NARRATIVE: CASE EVENT DATE: 202003
